FAERS Safety Report 8911240 (Version 2)
Quarter: 2013Q4

REPORT INFORMATION
  Report Type: Spontaneous
  Country: US (occurrence: US)
  Receive Date: 20121116
  Receipt Date: 20131217
  Transmission Date: 20140711
  Serious: No
  Sender: FDA-Public Use
  Company Number: US-GLAXOSMITHKLINE-A0993122A

PATIENT
  Age: 83 Year
  Sex: Male
  Weight: 87.3 kg

DRUGS (1)
  1. VOTRIENT [Suspect]
     Indication: PRODUCT USED FOR UNKNOWN INDICATION
     Dosage: 200MG UNKNOWN
     Route: 048
     Dates: end: 201209

REACTIONS (7)
  - Deep vein thrombosis [Unknown]
  - Disease progression [Unknown]
  - Hypoaesthesia oral [Unknown]
  - Tooth fracture [Unknown]
  - Endodontic procedure [Unknown]
  - Treatment noncompliance [Unknown]
  - Drug ineffective [Unknown]
